FAERS Safety Report 8888727 (Version 1)
Quarter: 2012Q4

REPORT INFORMATION
  Report Type: 
  Country: ES (occurrence: ES)
  Receive Date: 20121106
  Receipt Date: 20121106
  Transmission Date: 20130627
  Serious: Yes (Hospitalization)
  Sender: FDA-Public Use
  Company Number: ES-GLAXOSMITHKLINE-B0842280A

PATIENT
  Sex: Male

DRUGS (2)
  1. TROBALT [Suspect]
     Indication: EPILEPSY
     Dosage: 300MG per day
     Route: 048
  2. UNSPECIFIED [Concomitant]
     Route: 065

REACTIONS (1)
  - Pancreatitis acute [Recovering/Resolving]
